FAERS Safety Report 7916672-0 (Version None)
Quarter: 2011Q4

REPORT INFORMATION
  Report Type: 
  Country: None (occurrence: None)
  Receive Date: 20111116
  Receipt Date: 20111104
  Transmission Date: 20120403
  Serious: Yes (Hospitalization)
  Sender: FDA-Public Use
  Company Number: US-BAYER-201035049NA

PATIENT
  Age: 35 Year
  Sex: Female
  Weight: 99.773 kg

DRUGS (1)
  1. YASMIN [Suspect]
     Indication: PRODUCT USED FOR UNKNOWN INDICATION
     Dosage: UNK
     Route: 048
     Dates: start: 20050308, end: 20060103

REACTIONS (8)
  - COLONIC POLYP [None]
  - EMOTIONAL DISTRESS [None]
  - GASTROOESOPHAGEAL REFLUX DISEASE [None]
  - IRRITABLE BOWEL SYNDROME [None]
  - MENTAL DISORDER [None]
  - CHOLECYSTECTOMY [None]
  - MIGRAINE [None]
  - DEPRESSION [None]
